FAERS Safety Report 11719051 (Version 1)
Quarter: 2015Q4

REPORT INFORMATION
  Report Type: Spontaneous
  Country: US (occurrence: US)
  Receive Date: 20151110
  Receipt Date: 20151110
  Transmission Date: 20160304
  Serious: Yes (Hospitalization)
  Sender: FDA-Public Use
  Company Number: US-DRREDDYS-USA/USA/15/0053947

PATIENT
  Age: 2 Day
  Sex: Female
  Weight: 2.86 kg

DRUGS (3)
  1. LAMOTRIGINE TABLETS [Interacting]
     Active Substance: LAMOTRIGINE
     Route: 063
  2. LAMOTRIGINE TABLETS [Suspect]
     Active Substance: LAMOTRIGINE
     Indication: PRODUCT USED FOR UNKNOWN INDICATION
     Route: 064
  3. DIPHENHYDRAMINE. [Concomitant]
     Active Substance: DIPHENHYDRAMINE
     Indication: PRODUCT USED FOR UNKNOWN INDICATION
     Route: 064

REACTIONS (6)
  - Jaundice [Recovered/Resolved]
  - Dehydration [Recovered/Resolved]
  - Hypotonia neonatal [Recovered/Resolved]
  - Exposure during breast feeding [Unknown]
  - Feeding disorder of infancy or early childhood [Recovered/Resolved]
  - Foetal exposure during pregnancy [Unknown]
